FAERS Safety Report 8979299 (Version 1)
Quarter: 2012Q4

REPORT INFORMATION
  Report Type: 
  Country: US (occurrence: US)
  Receive Date: 20121221
  Receipt Date: 20121221
  Transmission Date: 20130627
  Serious: Yes (Other)
  Sender: FDA-Public Use
  Company Number: US-PFIZER INC-2012316677

PATIENT
  Sex: Female

DRUGS (3)
  1. PREPARATION H SUPPOSITORY [Suspect]
     Indication: HEMORRHOIDS
     Dosage: UNK (one suppository at a time after every bowel movement)
  2. PREPARATION H [Suspect]
     Indication: ANORECTAL DISORDER
  3. PREPARATION H SUPPOSITORY [Suspect]
     Indication: URINATION DIFFICULTY

REACTIONS (4)
  - Intentional drug misuse [Unknown]
  - Faecaloma [Unknown]
  - Faecal vomiting [Unknown]
  - Drug ineffective [Unknown]
